FAERS Safety Report 5491600-9 (Version None)
Quarter: 2007Q4

REPORT INFORMATION
  Report Type: 
  Country: None (occurrence: None)
  Receive Date: 20071018
  Receipt Date: 20071018
  Transmission Date: 20080405
  Serious: Yes (Hospitalization)
  Sender: FDA-Public Use
  Company Number: None

PATIENT
  Age: 51 Year
  Sex: Male

DRUGS (8)
  1. HYDROCHLOROTHIAZIDE [Suspect]
     Indication: HYPERTENSION
     Dosage: 25MG QD
     Dates: start: 20070729, end: 20070802
  2. IMDUR [Suspect]
     Indication: HYPERTENSION
     Dosage: 30MG QD
     Dates: start: 20070729, end: 20070802
  3. LABETALOL HCL [Suspect]
     Indication: HYPERTENSION
     Dosage: 300 MG BID
     Dates: start: 20070729, end: 20070802
  4. LISINOPRIL [Suspect]
     Indication: HYPERTENSION
     Dosage: 40 MG QD
     Dates: start: 20070729, end: 20070802
  5. AMIODARONE [Concomitant]
  6. ASPIRIN [Concomitant]
  7. ZETIA [Concomitant]
  8. ZOCOR [Concomitant]

REACTIONS (2)
  - HYPOTENSION [None]
  - SYNCOPE [None]
